FAERS Safety Report 8399151-9 (Version None)
Quarter: 2012Q2

REPORT INFORMATION
  Report Type: 
  Country: None (occurrence: None)
  Receive Date: 20120531
  Receipt Date: 20120518
  Transmission Date: 20120825
  Serious: Yes (Life-Threatening, Hospitalization)
  Sender: FDA-Public Use
  Company Number: ES-FRI-1000030586

PATIENT
  Age: 73 Year
  Sex: Female

DRUGS (6)
  1. DEPAKENE [Suspect]
     Indication: BIPOLAR DISORDER
     Dosage: 400 MG
     Route: 048
     Dates: start: 20110308, end: 20111213
  2. PANTOPRAZOLE [Suspect]
     Indication: PROPHYLAXIS
     Dosage: 40 MG
     Route: 048
     Dates: start: 20110711, end: 20111213
  3. ULTRACET [Suspect]
     Indication: OSTEOARTHRITIS
     Dosage: 3 DF
     Route: 048
     Dates: start: 20110701, end: 20111213
  4. ESCITALOPRAM [Suspect]
     Indication: BIPOLAR DISORDER
     Dosage: 5 MG
     Route: 048
     Dates: start: 20111107, end: 20111213
  5. FLUVASTATIN [Suspect]
     Indication: DYSLIPIDAEMIA
     Dosage: 80 MG
     Route: 048
     Dates: start: 20110309, end: 20111213
  6. TRAMADOL HCL [Suspect]
     Indication: OSTEOARTHRITIS
     Dosage: 150 MG
     Route: 048
     Dates: start: 20111207, end: 20111213

REACTIONS (2)
  - HYPERCREATINAEMIA [None]
  - RHABDOMYOLYSIS [None]
